FAERS Safety Report 8164080-2 (Version None)
Quarter: 2012Q1

REPORT INFORMATION
  Report Type: 
  Country: None (occurrence: None)
  Receive Date: 20120224
  Receipt Date: 20120214
  Transmission Date: 20120608
  Serious: Yes (Other)
  Sender: FDA-Public Use
  Company Number: PHFR2011GB006335

PATIENT
  Sex: Male
  Weight: 77.8 kg

DRUGS (3)
  1. CLOZARIL [Suspect]
  2. CLOZARIL [Suspect]
     Indication: SCHIZOPHRENIA
     Dosage: 250 MG, (100 MG AT MORNING AND 150 MG IN EVENING)
     Route: 048
     Dates: start: 20110407
  3. FLUOXETINE [Concomitant]
     Indication: DEPRESSION
     Dosage: 40 MG, DAILY
     Route: 048

REACTIONS (4)
  - VENTRICULAR EXTRASYSTOLES [None]
  - TACHYCARDIA [None]
  - LABILE BLOOD PRESSURE [None]
  - PYREXIA [None]
